FAERS Safety Report 8945685 (Version 2)
Quarter: 2013Q1

REPORT INFORMATION
  Report Type: Spontaneous
  Country: US (occurrence: US)
  Receive Date: 20121205
  Receipt Date: 20130103
  Transmission Date: 20140127
  Serious: Yes (Other)
  Sender: FDA-Public Use
  Company Number: US-ASTELLAS-2012US011672

PATIENT
  Age: 64 None
  Sex: Male

DRUGS (9)
  1. MYRBETRIQ [Suspect]
     Indication: MICTURITION URGENCY
     Dosage: 25 MG, UID/QD
     Route: 048
     Dates: start: 20121106, end: 20121112
  2. MYRBETRIQ [Interacting]
     Indication: POLLAKIURIA
  3. VIMPAT [Interacting]
     Indication: CONVULSION
     Dosage: 100 MG, BID
     Route: 048
  4. ASA [Concomitant]
     Indication: PRODUCT USED FOR UNKNOWN INDICATION
     Dosage: UNK
     Route: 065
  5. PRAVACHOL [Concomitant]
     Indication: PRODUCT USED FOR UNKNOWN INDICATION
     Dosage: UNK
     Route: 065
  6. TRAZODONE [Concomitant]
     Indication: PRODUCT USED FOR UNKNOWN INDICATION
     Dosage: UNK
     Route: 065
  7. PRAZOSIN [Concomitant]
     Indication: PRODUCT USED FOR UNKNOWN INDICATION
     Dosage: UNK
     Route: 065
  8. NORCO [Concomitant]
     Indication: PRODUCT USED FOR UNKNOWN INDICATION
     Dosage: UNK
     Route: 065
  9. PRISTIQ [Concomitant]
     Indication: PRODUCT USED FOR UNKNOWN INDICATION
     Dosage: UNK
     Route: 065

REACTIONS (4)
  - Grand mal convulsion [Recovered/Resolved]
  - Drug interaction [Unknown]
  - Nasal congestion [Recovered/Resolved]
  - Headache [Recovered/Resolved]
